FAERS Safety Report 14840470 (Version 1)
Quarter: 2018Q2

REPORT INFORMATION
  Report Type: Report from Study
  Country: IT (occurrence: IT)
  Receive Date: 20180503
  Receipt Date: 20180503
  Transmission Date: 20180711
  Serious: Yes (Hospitalization)
  Sender: FDA-Public Use
  Company Number: IT-CONCORDIA PHARMACEUTICALS INC.-E2B_00011511

PATIENT
  Age: 92 Year
  Sex: Female
  Weight: 80 kg

DRUGS (1)
  1. DIGOXIN. [Suspect]
     Active Substance: DIGOXIN
     Route: 048

REACTIONS (5)
  - Atrioventricular block [Recovering/Resolving]
  - Cardioactive drug level increased [Recovering/Resolving]
  - Adverse drug reaction [Recovering/Resolving]
  - Bradycardia [Recovering/Resolving]
  - Adverse event [Recovering/Resolving]

NARRATIVE: CASE EVENT DATE: 20180203
